FAERS Safety Report 5359842-0 (Version None)
Quarter: 2007Q2

REPORT INFORMATION
  Report Type: 
  Country: None (occurrence: None)
  Receive Date: 20070530
  Receipt Date: 20070315
  Transmission Date: 20071010
  Serious: No
  Sender: FDA-Public Use
  Company Number: 2007PV031759

PATIENT
  Age: 67 Year
  Sex: Female
  Weight: 90.2658 kg

DRUGS (4)
  1. BYETTA [Suspect]
     Indication: DIABETES MELLITUS NON-INSULIN-DEPENDENT
     Dosage: 5 MCG;QPM;BID;SC
     Route: 058
     Dates: start: 20070314, end: 20070321
  2. BYETTA [Suspect]
     Indication: DIABETES MELLITUS NON-INSULIN-DEPENDENT
     Dosage: 5 MCG;QPM;BID;SC
     Route: 058
     Dates: start: 20070322
  3. GLUCOPHAGE [Concomitant]
  4. JANUVIA [Concomitant]

REACTIONS (5)
  - BLOOD GLUCOSE INCREASED [None]
  - DIARRHOEA [None]
  - DRUG EFFECT DECREASED [None]
  - INCREASED APPETITE [None]
  - WEIGHT DECREASED [None]
